FAERS Safety Report 6541380-0 (Version None)
Quarter: 2010Q1

REPORT INFORMATION
  Report Type: 
  Country: None (occurrence: None)
  Receive Date: 20100118
  Receipt Date: 20100111
  Transmission Date: 20100710
  Serious: Yes (Death)
  Sender: FDA-Public Use
  Company Number: PHHY2010GB02355

PATIENT

DRUGS (2)
  1. CYCLOSPORINE [Suspect]
     Indication: LIVER TRANSPLANT
     Dosage: UNK
     Dates: start: 19880101
  2. MYCOPHENOLATE MOFETIL [Concomitant]
     Indication: LIVER TRANSPLANT
     Dosage: UNK
     Dates: start: 19880101

REACTIONS (2)
  - LIVER TRANSPLANT REJECTION [None]
  - SEPSIS [None]
